FAERS Safety Report 25054905 (Version 1)
Quarter: 2025Q1

REPORT INFORMATION
  Report Type: Spontaneous
  Country: NL (occurrence: NL)
  Receive Date: 20250308
  Receipt Date: 20250308
  Transmission Date: 20250408
  Serious: Yes (Life-Threatening, Hospitalization, Other)
  Sender: QUAGEN PHARMACEUTICALS
  Company Number: NL-QUAGEN-2025QUALIT00265

PATIENT
  Sex: Female

DRUGS (1)
  1. LIDOCAINE [Suspect]
     Active Substance: LIDOCAINE
     Indication: Epidural analgesia
     Route: 037

REACTIONS (4)
  - Respiratory failure [Unknown]
  - Hypotension [Unknown]
  - Dysphagia [Unknown]
  - Maternal exposure during delivery [Unknown]
